FAERS Safety Report 7128372-8 (Version None)
Quarter: 2010Q4

REPORT INFORMATION
  Report Type: 
  Country: None (occurrence: None)
  Receive Date: 20101130
  Receipt Date: 20101122
  Transmission Date: 20110411
  Serious: Yes (Hospitalization)
  Sender: FDA-Public Use
  Company Number: PHHO2010US17644

PATIENT
  Sex: Female

DRUGS (16)
  1. NEORAL [Suspect]
     Indication: RENAL TRANSPLANT
     Dosage: 225 MG, QD
     Route: 048
     Dates: start: 20061015
  2. CELLCEPT [Concomitant]
  3. PREDNISONE [Concomitant]
  4. ACETAMINOPHEN [Concomitant]
  5. FOSAMAX [Concomitant]
  6. CALCIUM [Concomitant]
  7. SURFAK [Concomitant]
  8. LOPID [Concomitant]
  9. M.V.I. [Concomitant]
  10. PROCARDIA XL [Concomitant]
  11. PRILOSEC [Concomitant]
  12. ERGOCALCIFEROL [Concomitant]
  13. VYTORIN [Concomitant]
  14. LANTUS [Concomitant]
  15. NOVOLOG [Concomitant]
  16. ASPIRIN [Concomitant]

REACTIONS (3)
  - APHASIA [None]
  - CEREBRAL INFARCTION [None]
  - CEREBROVASCULAR ACCIDENT [None]
